FAERS Safety Report 17531929 (Version 1)
Quarter: 2020Q1

REPORT INFORMATION
  Report Type: Spontaneous
  Country: GB (occurrence: GB)
  Receive Date: 20200312
  Receipt Date: 20200312
  Transmission Date: 20200409
  Serious: Yes (Other)
  Sender: FDA-Public Use
  Company Number: GB-JNJFOC-20200306367

PATIENT
  Age: 8 Week
  Sex: Male
  Weight: 5.4 kg

DRUGS (1)
  1. CALPOL [Suspect]
     Active Substance: ACETAMINOPHEN
     Indication: PYREXIA
     Dosage: 2.5ML (X2 - AFTER 5 HOURS)
     Route: 048
     Dates: start: 20200218, end: 20200218

REACTIONS (5)
  - Crying [Unknown]
  - Vomiting projectile [Recovering/Resolving]
  - Irritability [Unknown]
  - Decreased appetite [Unknown]
  - Discomfort [Unknown]

NARRATIVE: CASE EVENT DATE: 20200218
